FAERS Safety Report 11238667 (Version 1)
Quarter: 2015Q3

REPORT INFORMATION
  Report Type: Report from Study
  Country: BR (occurrence: BR)
  Receive Date: 20150706
  Receipt Date: 20150706
  Transmission Date: 20151125
  Serious: Yes (Other)
  Sender: FDA-Public Use
  Company Number: PHHY2015BR077036

PATIENT
  Sex: Male
  Weight: 90 kg

DRUGS (1)
  1. EXELON PATCH [Suspect]
     Active Substance: RIVASTIGMINE
     Indication: MEMORY IMPAIRMENT
     Dosage: 1 DF, UNK
     Route: 065

REACTIONS (5)
  - Epilepsy [Unknown]
  - Balance disorder [Unknown]
  - Disorientation [Unknown]
  - Dizziness [Unknown]
  - Cerebrovascular accident [Not Recovered/Not Resolved]
